FAERS Safety Report 18422383 (Version 1)
Quarter: 2020Q4

REPORT INFORMATION
  Report Type: Spontaneous
  Country: TW (occurrence: TW)
  Receive Date: 20201023
  Receipt Date: 20201023
  Transmission Date: 20210114
  Serious: No
  Sender: FDA-Public Use
  Company Number: TW-LUPIN PHARMACEUTICALS INC.-2020-06209

PATIENT
  Age: 9 Year
  Sex: Female

DRUGS (9)
  1. HYDROXYCHLOROQUINE [Suspect]
     Active Substance: HYDROXYCHLOROQUINE
     Indication: MORPHOEA
     Dosage: 6 MILLIGRAM/KILOGRAM, QD
     Route: 048
  2. PREDNISOLONE. [Suspect]
     Active Substance: PREDNISOLONE
     Dosage: 0.5-1 MG/KG/DAY (MAXIMUM DOSE OF 20 MG/DAY) FOR 2 WEEKS AND THEN TAPERED OFF WITHIN A YEAR
     Route: 048
  3. ADAPALENE. [Suspect]
     Active Substance: ADAPALENE
     Indication: MORPHOEA
     Dosage: UNK
     Route: 061
  4. CALCIPOTRIOL COMP [Suspect]
     Active Substance: BETAMETHASONE DIPROPIONATE\CALCIPOTRIENE
     Indication: MORPHOEA
     Dosage: UNK
     Route: 061
  5. D-PENICILLAMINE [Suspect]
     Active Substance: PENICILLAMINE
     Indication: MORPHOEA
     Dosage: 5 MILLIGRAM/KILLOGRAM EVERY WEEK
     Route: 048
  6. PREDNISOLONE. [Suspect]
     Active Substance: PREDNISOLONE
     Indication: MORPHOEA
     Dosage: 1 MG/KG QD (MAXIMUM 40 MG/DAY) FOR 2 MONTHS AND THEN TAPERED OFF)
     Route: 048
  7. METHOTREXATE. [Suspect]
     Active Substance: METHOTREXATE
     Indication: MORPHOEA
     Dosage: 15 MILLIGRAM/SQ. METER EVERY WEEK
     Route: 048
  8. FLUTICASONE PROPIONATE. [Suspect]
     Active Substance: FLUTICASONE PROPIONATE
     Indication: MORPHOEA
     Dosage: UNK
     Route: 061
  9. METHOTREXATE. [Suspect]
     Active Substance: METHOTREXATE
     Dosage: 10 MILLIGRAM/SQ. METER EVERY WEEK
     Route: 048

REACTIONS (1)
  - Off label use [Unknown]
